FAERS Safety Report 6123163-9 (Version None)
Quarter: 2009Q1

REPORT INFORMATION
  Report Type: 
  Country: None (occurrence: None)
  Receive Date: 20090318
  Receipt Date: 20090306
  Transmission Date: 20090719
  Serious: Yes (Other)
  Sender: FDA-Public Use
  Company Number: GR-ELI_LILLY_AND_COMPANY-GR200903001591

PATIENT
  Age: 55 Year
  Sex: Female
  Weight: 95 kg

DRUGS (3)
  1. CYMBALTA [Suspect]
     Indication: DEPRESSION
     Dosage: 120 MG, DAILY (1/D)
     Route: 048
     Dates: start: 20080101, end: 20080901
  2. TAVOR [Concomitant]
     Indication: DEPRESSION
     Dosage: 2.5 MG, DAILY (1/D)
     Route: 048
     Dates: start: 20080701, end: 20090919
  3. ISCOVER [Concomitant]
     Indication: CEREBROVASCULAR ACCIDENT
     Dosage: 75 MG, DAILY (1/D)
     Route: 048
     Dates: start: 20070101, end: 20090919

REACTIONS (4)
  - ALANINE AMINOTRANSFERASE INCREASED [None]
  - ASPARTATE AMINOTRANSFERASE INCREASED [None]
  - BLOOD ALKALINE PHOSPHATASE INCREASED [None]
  - GAMMA-GLUTAMYLTRANSFERASE INCREASED [None]
